FAERS Safety Report 12919092 (Version 2)
Quarter: 2021Q1

REPORT INFORMATION
  Report Type: Spontaneous
  Country: US (occurrence: US)
  Receive Date: 20161108
  Receipt Date: 20210301
  Transmission Date: 20210419
  Serious: No
  Sender: FDA-Public Use
  Company Number: US-009507513-1611USA000794

PATIENT
  Sex: Male

DRUGS (4)
  1. INTRON A [Suspect]
     Active Substance: INTERFERON ALFA-2B
     Indication: MYELOFIBROSIS
     Dosage: 1.5 MILLION UNITS ONCE PER DAY, 7 DAYS A WEEK
  2. METOPROLOL. [Concomitant]
     Active Substance: METOPROLOL
  3. LEVOTHYROXINE SODIUM. [Concomitant]
     Active Substance: LEVOTHYROXINE SODIUM
  4. INTRON A [Suspect]
     Active Substance: INTERFERON ALFA-2B
     Dosage: 1.5 MILLION UNITS ONCE PER DAY, 5 DAYS A WEEK

REACTIONS (4)
  - Product use in unapproved indication [Unknown]
  - Hepatic enzyme increased [Recovering/Resolving]
  - Inappropriate schedule of product administration [Unknown]
  - Tremor [Recovered/Resolved]
